FAERS Safety Report 22898123 (Version 2)
Quarter: 2023Q4

REPORT INFORMATION
  Report Type: Spontaneous
  Country: US (occurrence: US)
  Receive Date: 20230903
  Receipt Date: 20231123
  Transmission Date: 20240110
  Serious: No
  Sender: FDA-Public Use
  Company Number: US-LEO Pharma-361432

PATIENT
  Sex: Female

DRUGS (1)
  1. AZELAIC ACID [Suspect]
     Active Substance: AZELAIC ACID
     Indication: Product used for unknown indication
     Route: 003

REACTIONS (2)
  - Drug ineffective [Unknown]
  - Condition aggravated [Unknown]
